FAERS Safety Report 9876492 (Version 2)
Quarter: 2014Q1

REPORT INFORMATION
  Report Type: Other
  Country: US (occurrence: US)
  Receive Date: 20140206
  Receipt Date: 20140206
  Transmission Date: 20141002
  Serious: No
  Sender: FDA-Public Use
  Company Number: US-ACORDA-ACO_37409_2013

PATIENT
  Age: 55 Year
  Sex: Female

DRUGS (4)
  1. AMPYRA [Suspect]
     Indication: PRODUCT USED FOR UNKNOWN INDICATION
     Dosage: 10 MG, Q 12 HRS
     Route: 048
     Dates: start: 20130116
  2. ASPIRIN [Concomitant]
     Indication: PRODUCT USED FOR UNKNOWN INDICATION
     Dosage: 81 MG, UNK
  3. TICFIDERA [Concomitant]
  4. DICLOFENA SODIUM [Concomitant]

REACTIONS (4)
  - Flushing [Unknown]
  - Rash erythematous [Unknown]
  - Hypoaesthesia [Not Recovered/Not Resolved]
  - Abdominal discomfort [Unknown]
